FAERS Safety Report 21240876 (Version 4)
Quarter: 2024Q2

REPORT INFORMATION
  Report Type: Spontaneous
  Country: US (occurrence: US)
  Receive Date: 20220823
  Receipt Date: 20240611
  Transmission Date: 20240715
  Serious: No
  Sender: FDA-Public Use
  Company Number: US-SA-SAC20220811002066

PATIENT
  Age: 75 Year
  Sex: Female

DRUGS (4)
  1. DUPIXENT [Suspect]
     Active Substance: DUPILUMAB
     Dosage: 300 MG-FREQUENCY OTHER
     Route: 058
  2. DUPIXENT [Suspect]
     Active Substance: DUPILUMAB
     Dosage: 300 MG, QOW
     Route: 058
  3. PLAVIX [Concomitant]
     Active Substance: CLOPIDOGREL BISULFATE
  4. ASPIRIN [Concomitant]
     Active Substance: ASPIRIN

REACTIONS (12)
  - Peripheral vascular disorder [Unknown]
  - Burning sensation [Unknown]
  - COVID-19 [Unknown]
  - Dry skin [Unknown]
  - Muscle spasms [Unknown]
  - Erythema [Unknown]
  - Dermatitis atopic [Unknown]
  - Inappropriate schedule of product administration [Unknown]
  - Dermatitis [Unknown]
  - Product dose omission issue [Unknown]
  - Pruritus [Unknown]
  - Contusion [Unknown]
